FAERS Safety Report 5880168-0 (Version None)
Quarter: 2008Q3

REPORT INFORMATION
  Report Type: 
  Country: None (occurrence: None)
  Receive Date: 20080912
  Receipt Date: 20080902
  Transmission Date: 20090109
  Serious: Yes (Other)
  Sender: FDA-Public Use
  Company Number: US-PFIZER INC-2008073924

PATIENT
  Sex: Female
  Weight: 49.9 kg

DRUGS (1)
  1. SUTENT [Suspect]

REACTIONS (4)
  - DYSPHAGIA [None]
  - LOCAL SWELLING [None]
  - OESOPHAGEAL FOOD IMPACTION [None]
  - WEIGHT DECREASED [None]
